FAERS Safety Report 24688423 (Version 2)
Quarter: 2024Q4

REPORT INFORMATION
  Report Type: Report from Study
  Country: US (occurrence: US)
  Receive Date: 20241202
  Receipt Date: 20241206
  Transmission Date: 20250115
  Serious: Yes (Hospitalization, Other)
  Sender: ABBVIE
  Company Number: US-ABBVIE-6025382

PATIENT
  Age: 25 Year
  Sex: Male
  Weight: 52.616 kg

DRUGS (1)
  1. RINVOQ [Suspect]
     Active Substance: UPADACITINIB
     Indication: Colitis ulcerative
     Dosage: FORM STRENGTH- 45 MILLIGRAM
     Route: 048
     Dates: start: 20221008, end: 20230202

REACTIONS (6)
  - Proctectomy [Unknown]
  - Crohn^s disease [Not Recovered/Not Resolved]
  - Colectomy [Not Recovered/Not Resolved]
  - Drug ineffective [Recovered/Resolved]
  - Illness [Unknown]
  - Colitis [Unknown]

NARRATIVE: CASE EVENT DATE: 20240401
